FAERS Safety Report 5472972-8 (Version None)
Quarter: 2007Q4

REPORT INFORMATION
  Report Type: 
  Country: None (occurrence: None)
  Receive Date: 20071001
  Receipt Date: 20070110
  Transmission Date: 20080405
  Serious: Yes (Other)
  Sender: FDA-Public Use
  Company Number: US-ASTRAZENECA-2007UW00512

PATIENT
  Age: 75 Year
  Sex: Female

DRUGS (5)
  1. ARIMIDEX [Suspect]
     Indication: BREAST CANCER FEMALE
     Route: 048
     Dates: start: 20050101, end: 20061101
  2. ARIMIDEX [Suspect]
     Route: 048
     Dates: start: 20061101
  3. COUMADIN [Concomitant]
  4. ACIPHEX [Concomitant]
  5. ZESTRIL [Concomitant]

REACTIONS (2)
  - BONE PAIN [None]
  - HOT FLUSH [None]
